FAERS Safety Report 4289203-7 (Version None)
Quarter: 2004Q1

REPORT INFORMATION
  Report Type: 
  Country: None (occurrence: None)
  Receive Date: 20040205
  Receipt Date: 20040127
  Transmission Date: 20041129
  Serious: Yes (Hospitalization, Other)
  Sender: FDA-Public Use
  Company Number: 04-0005PO

PATIENT
  Age: 68 Year
  Sex: Male

DRUGS (3)
  1. PONSTEL [Suspect]
     Indication: UPPER RESPIRATORY TRACT INFECTION
     Dosage: PO
     Route: 048
     Dates: start: 19950501
  2. CIPROFLOXACIN [Suspect]
     Indication: UPPER RESPIRATORY TRACT INFECTION
     Dosage: PO
     Route: 048
     Dates: start: 19950501
  3. OVER THE COUNTER COLD MEDICATION [Concomitant]

REACTIONS (4)
  - BLOOD CREATININE INCREASED [None]
  - NEPHRITIS INTERSTITIAL [None]
  - RENAL IMPAIRMENT [None]
  - RENAL TUBULAR DISORDER [None]
